FAERS Safety Report 4388245-0 (Version None)
Quarter: 2004Q2

REPORT INFORMATION
  Report Type: 
  Country: None (occurrence: None)
  Receive Date: 20040624
  Receipt Date: 20040614
  Transmission Date: 20050107
  Serious: Yes (Death, Hospitalization)
  Sender: FDA-Public Use
  Company Number: 163-20785-04060004

PATIENT
  Age: 75 Year
  Sex: Female

DRUGS (1)
  1. THALOMID [Suspect]
     Indication: ANGIOSARCOMA
     Dosage: 200 MG, DAILY, ORAL
     Route: 048
     Dates: start: 20040524, end: 20040527

REACTIONS (4)
  - ANGIOSARCOMA [None]
  - HAEMOGLOBIN DECREASED [None]
  - MALIGNANT NEOPLASM PROGRESSION [None]
  - SKIN BLEEDING [None]
